FAERS Safety Report 5743589-2 (Version None)
Quarter: 2008Q2

REPORT INFORMATION
  Report Type: 
  Country: None (occurrence: None)
  Receive Date: 20080520
  Receipt Date: 20080516
  Transmission Date: 20081010
  Serious: Yes (Death)
  Sender: FDA-Public Use
  Company Number: PHHY2008DK08112

PATIENT
  Sex: Male
  Weight: 115 kg

DRUGS (4)
  1. CLOZAPINE [Suspect]
     Indication: SCHIZOPHRENIA
     Dosage: 100 MG, QID
     Route: 048
     Dates: start: 20080121
  2. ZOLPIDEM TARTRATE [Concomitant]
     Indication: SCHIZOPHRENIA
  3. ALOPAM [Concomitant]
     Indication: SCHIZOPHRENIA
  4. KEMADRIN [Concomitant]
     Indication: SCHIZOPHRENIA

REACTIONS (1)
  - MYOCARDITIS [None]
